FAERS Safety Report 4521111-6 (Version None)
Quarter: 2004Q4

REPORT INFORMATION
  Report Type: 
  Country: None (occurrence: None)
  Receive Date: 20041206
  Receipt Date: 20041118
  Transmission Date: 20050328
  Serious: Yes (Hospitalization)
  Sender: FDA-Public Use
  Company Number: DSA_25442_2004

PATIENT
  Age: 79 Year
  Sex: Female

DRUGS (2)
  1. TEMESTA [Suspect]
     Dosage: DF PO
     Route: 048
     Dates: end: 20030301
  2. TEMESTA [Suspect]
     Dosage: DF PO
     Route: 048
     Dates: start: 20030301

REACTIONS (6)
  - CONFUSIONAL STATE [None]
  - DISORIENTATION [None]
  - DRUG WITHDRAWAL SYNDROME [None]
  - ELECTROENCEPHALOGRAM ABNORMAL [None]
  - FALL [None]
  - HALLUCINATIONS, MIXED [None]
